FAERS Safety Report 16700422 (Version 4)
Quarter: 2020Q2

REPORT INFORMATION
  Report Type: Report from Study
  Country: None (occurrence: US)
  Receive Date: 20190814
  Receipt Date: 20200623
  Transmission Date: 20200713
  Serious: Yes (Hospitalization)
  Sender: FDA-Public Use
  Company Number: US-ABBVIE-19K-163-2883645-00

PATIENT
  Age: 86 Year
  Sex: Male
  Weight: 77.18 kg

DRUGS (10)
  1. ALEVE [Concomitant]
     Active Substance: NAPROXEN SODIUM
     Indication: ARTHRITIS
  2. HUMIRA [Suspect]
     Active Substance: ADALIMUMAB
     Indication: COLITIS ULCERATIVE
     Route: 058
     Dates: start: 201506, end: 20180726
  3. BRIMONIDINE [Concomitant]
     Active Substance: BRIMONIDINE TARTRATE
     Indication: GLAUCOMA
  4. HYDROQUINONE. [Concomitant]
     Active Substance: HYDROQUINONE
     Indication: RHEUMATOID ARTHRITIS
  5. HUMIRA [Suspect]
     Active Substance: ADALIMUMAB
     Route: 058
     Dates: start: 201905
  6. AMLODIPINE [Concomitant]
     Active Substance: AMLODIPINE BESYLATE
     Indication: GLAUCOMA
  7. LEFLUNOMIDE. [Concomitant]
     Active Substance: LEFLUNOMIDE
     Indication: PRODUCT USED FOR UNKNOWN INDICATION
  8. DORZOLAMIDE [Concomitant]
     Active Substance: DORZOLAMIDE
     Indication: GLAUCOMA
  9. LATANOPROST. [Concomitant]
     Active Substance: LATANOPROST
     Indication: GLAUCOMA
  10. LEFLUNOMIDE. [Concomitant]
     Active Substance: LEFLUNOMIDE
     Dosage: INCREASED DOSE

REACTIONS (17)
  - Fall [Unknown]
  - Sinusitis [Recovered/Resolved]
  - Spinal disorder [Recovered/Resolved]
  - Intervertebral disc protrusion [Recovered/Resolved]
  - Localised infection [Recovered/Resolved]
  - Constipation [Recovering/Resolving]
  - Sciatic nerve neuropathy [Unknown]
  - Arthropathy [Unknown]
  - Influenza [Recovered/Resolved]
  - Back pain [Recovered/Resolved]
  - Impaired healing [Recovered/Resolved]
  - Neuralgia [Unknown]
  - Lymphoedema [Unknown]
  - Surgical failure [Unknown]
  - Postoperative wound infection [Recovered/Resolved]
  - Post procedural complication [Unknown]
  - Poor quality sleep [Unknown]

NARRATIVE: CASE EVENT DATE: 2018
